FAERS Safety Report 22995882 (Version 3)
Quarter: 2023Q4

REPORT INFORMATION
  Report Type: Spontaneous
  Country: US (occurrence: US)
  Receive Date: 20230927
  Receipt Date: 20231226
  Transmission Date: 20240109
  Serious: No
  Sender: FDA-Public Use
  Company Number: US-ABBVIE-5424800

PATIENT
  Sex: Female

DRUGS (2)
  1. KYBELLA [Suspect]
     Active Substance: DEOXYCHOLIC ACID
     Indication: Lipolysis procedure
     Dosage: TIME INTERVAL: AS NECESSARY: 8 VIALS= RIGHT X 5 VIALS /LEFT X 3 VIALS?FREQUENCY TEXT: 1 TIME
     Route: 058
     Dates: start: 20230907, end: 20230907
  2. KYBELLA [Suspect]
     Active Substance: DEOXYCHOLIC ACID
     Indication: Lipolysis procedure
     Dosage: TIME INTERVAL: AS NECESSARY
     Route: 058

REACTIONS (3)
  - Injection site papule [Recovered/Resolved]
  - Injection site mass [Recovered/Resolved]
  - Injection site induration [Recovered/Resolved]

NARRATIVE: CASE EVENT DATE: 20230901
